FAERS Safety Report 5053764-0 (Version None)
Quarter: 2006Q3

REPORT INFORMATION
  Report Type: 
  Country: None (occurrence: None)
  Receive Date: 20060718
  Receipt Date: 20060504
  Transmission Date: 20061208
  Serious: Yes (Life-Threatening, Hospitalization, Disabling, Other)
  Sender: FDA-Public Use
  Company Number: PHEH2006US05868

PATIENT
  Age: 62 Year
  Sex: Male
  Weight: 120.18 kg

DRUGS (5)
  1. TOPROL-XL [Concomitant]
     Dosage: 50 MG, QD
     Route: 048
  2. LIPITOR [Concomitant]
     Dosage: 10 MG, QD
     Route: 048
  3. MOBIC [Concomitant]
     Dosage: 15 MG, QD
     Route: 048
  4. ASPIRIN [Concomitant]
     Dosage: 81 MG, QD
     Route: 048
  5. DIOVAN [Suspect]
     Dosage: 160 MG, QD
     Route: 048
     Dates: start: 20060125, end: 20060424

REACTIONS (7)
  - ANGIONEUROTIC OEDEMA [None]
  - CARDIOMEGALY [None]
  - COMPUTERISED TOMOGRAM ABNORMAL [None]
  - DYSPNOEA [None]
  - RASH [None]
  - SWOLLEN TONGUE [None]
  - URTICARIA [None]
